FAERS Safety Report 21290211 (Version 1)
Quarter: 2022Q3

REPORT INFORMATION
  Report Type: Spontaneous
  Country: US (occurrence: US)
  Receive Date: 20220902
  Receipt Date: 20220902
  Transmission Date: 20221027
  Serious: Yes (Hospitalization, Other)
  Sender: FDA-Public Use
  Company Number: US-ELI_LILLY_AND_COMPANY-US202208014662

PATIENT
  Sex: Female

DRUGS (2)
  1. HUMALOG [Suspect]
     Active Substance: INSULIN LISPRO
     Indication: Type 1 diabetes mellitus
     Dosage: UNK UNK, UNKNOWN
     Route: 065
  2. HUMALOG [Suspect]
     Active Substance: INSULIN LISPRO
     Indication: Type 2 diabetes mellitus

REACTIONS (11)
  - COVID-19 [Unknown]
  - Fall [Unknown]
  - Lactic acidosis [Unknown]
  - Pancreatitis [Unknown]
  - Concussion [Unknown]
  - Blood pressure fluctuation [Unknown]
  - Intentional product misuse [Unknown]
  - Diabetes mellitus inadequate control [Unknown]
  - Post-acute COVID-19 syndrome [Unknown]
  - Drug hypersensitivity [Unknown]
  - Blood glucose decreased [Unknown]

NARRATIVE: CASE EVENT DATE: 20200101
